FAERS Safety Report 24545747 (Version 1)
Quarter: 2024Q4

REPORT INFORMATION
  Report Type: Report from Study
  Country: US (occurrence: US)
  Receive Date: 20241024
  Receipt Date: 20241024
  Transmission Date: 20250115
  Serious: Yes (Hospitalization)
  Sender: UCB
  Company Number: US-UCBSA-2024054160

PATIENT
  Sex: Male

DRUGS (1)
  1. LACOSAMIDE [Suspect]
     Active Substance: LACOSAMIDE
     Indication: Seizure
     Dosage: TAKE 13ML BY MOUTH IN THE MORNING, 11ML IN THE AFTERNOON AND 13ML IN THE EVENING
     Route: 048

REACTIONS (3)
  - Urinary tract infection [Unknown]
  - Constipation [Unknown]
  - Product use issue [Unknown]
